FAERS Safety Report 8161067-0 (Version None)
Quarter: 2012Q1

REPORT INFORMATION
  Report Type: 
  Country: None (occurrence: None)
  Receive Date: 20120224
  Receipt Date: 20120222
  Transmission Date: 20120608
  Serious: Yes (Hospitalization)
  Sender: FDA-Public Use
  Company Number: IT-BRISTOL-MYERS SQUIBB COMPANY-16385031

PATIENT
  Age: 66 Year
  Sex: Female

DRUGS (4)
  1. COUMADIN [Suspect]
     Indication: DEEP VEIN THROMBOSIS
     Dosage: INTERRUPT ON 07AUG2010
     Dates: start: 20060401
  2. PREDNISONE TAB [Concomitant]
     Dosage: TABS
  3. MEDROL [Concomitant]
  4. ISOPTIN [Concomitant]
     Route: 048

REACTIONS (2)
  - MUSCLE HAEMORRHAGE [None]
  - ANAEMIA [None]
